FAERS Safety Report 8954358 (Version 2)
Quarter: 2012Q4

REPORT INFORMATION
  Report Type: Report from Study
  Country: JP (occurrence: JP)
  Receive Date: 20121207
  Receipt Date: 20121227
  Transmission Date: 20130627
  Serious: Yes (Other)
  Sender: FDA-Public Use
  Company Number: JP-OTSUKA-JP-2012-16651

PATIENT
  Age: 85 Year
  Sex: Female
  Weight: 49 kg

DRUGS (3)
  1. SAMSCA [Suspect]
     Indication: FLUID RETENTION
     Dosage: 7.5 Mg milligram(s), qam
     Route: 048
     Dates: start: 20120907
  2. LASIX [Concomitant]
     Indication: CARDIAC FAILURE
     Dosage: 20 Mg milligram(s), daily dose
     Route: 048
  3. ALDACTONE A [Concomitant]
     Indication: CARDIAC FAILURE
     Dosage: 25 Mg milligram(s), daily dose
     Route: 048

REACTIONS (2)
  - Renal impairment [Recovered/Resolved]
  - Thirst [Recovering/Resolving]
